FAERS Safety Report 25336370 (Version 1)
Quarter: 2025Q2

REPORT INFORMATION
  Report Type: Other
  Country: CA (occurrence: CA)
  Receive Date: 20250520
  Receipt Date: 20250520
  Transmission Date: 20250717
  Serious: Yes (Hospitalization, Other)
  Sender: ANI
  Company Number: CA-ANIPHARMA-022788

PATIENT
  Age: 67 Year
  Sex: Female

DRUGS (20)
  1. CYCLOPHOSPHAMIDE [Suspect]
     Active Substance: CYCLOPHOSPHAMIDE
     Indication: Burkitt^s lymphoma
  2. RITUXIMAB [Concomitant]
     Active Substance: RITUXIMAB
     Indication: Burkitt^s lymphoma
  3. VINCRISTINE [Concomitant]
     Active Substance: VINCRISTINE
     Indication: Burkitt^s lymphoma
  4. DOXORUBICIN [Concomitant]
     Active Substance: DOXORUBICIN
     Indication: Burkitt^s lymphoma
  5. METHOTREXATE [Concomitant]
     Active Substance: METHOTREXATE
     Indication: Burkitt^s lymphoma
  6. HYDROCORTISONE [Concomitant]
     Active Substance: HYDROCORTISONE
     Indication: Burkitt^s lymphoma
  7. CYTARABINE [Concomitant]
     Active Substance: CYTARABINE
     Indication: Burkitt^s lymphoma
  8. GRANULOCYTE COLONY-STIMULATING FACTOR NOS [Concomitant]
     Active Substance: GRANULOCYTE COLONY-STIMULATING FACTOR NOS
     Indication: Product used for unknown indication
  9. MEROPENEM [Concomitant]
     Active Substance: MEROPENEM
     Indication: Product used for unknown indication
  10. CASPOFUNGIN [Concomitant]
     Active Substance: CASPOFUNGIN
     Indication: Product used for unknown indication
  11. AMPHOTERICIN B [Concomitant]
     Active Substance: AMPHOTERICIN B
     Indication: Product used for unknown indication
  12. CYCLOPHOSPHAMIDE [Suspect]
     Active Substance: CYCLOPHOSPHAMIDE
     Indication: Metastases to meninges
  13. METHOTREXATE [Concomitant]
     Active Substance: METHOTREXATE
     Indication: Metastases to meninges
     Route: 037
  14. VINCRISTINE [Concomitant]
     Active Substance: VINCRISTINE
     Indication: Metastases to meninges
  15. RITUXIMAB [Concomitant]
     Active Substance: RITUXIMAB
     Indication: Metastases to meninges
  16. CYTARABINE [Concomitant]
     Active Substance: CYTARABINE
     Indication: Metastases to meninges
  17. HYDROCORTISONE [Concomitant]
     Active Substance: HYDROCORTISONE
     Indication: Metastases to meninges
  18. METHOTREXATE [Concomitant]
     Active Substance: METHOTREXATE
     Indication: Metastases to meninges
  19. METHOTREXATE [Concomitant]
     Active Substance: METHOTREXATE
     Indication: Burkitt^s lymphoma
     Route: 037
  20. DOXORUBICIN [Concomitant]
     Active Substance: DOXORUBICIN
     Indication: Metastases to meninges

REACTIONS (2)
  - Pneumonia [Unknown]
  - Bacteraemia [Unknown]
